FAERS Safety Report 15449620 (Version 3)
Quarter: 2018Q4

REPORT INFORMATION
  Report Type: Report from Study
  Country: JP (occurrence: JP)
  Receive Date: 20181001
  Receipt Date: 20181216
  Transmission Date: 20190204
  Serious: Yes (Other)
  Sender: FDA-Public Use
  Company Number: JP-BRISTOL-MYERS SQUIBB COMPANY-BMS-2016-042000

PATIENT
  Age: 56 Year
  Sex: Male
  Weight: 68 kg

DRUGS (1)
  1. NIVOLUMAB [Suspect]
     Active Substance: NIVOLUMAB
     Indication: NON-SMALL CELL LUNG CANCER RECURRENT
     Dosage: 3 MG/KG, UNK
     Route: 065
     Dates: start: 20160323, end: 20170201

REACTIONS (11)
  - Chest pain [Unknown]
  - Infusion related reaction [Recovered/Resolved]
  - Pyrexia [Recovered/Resolved]
  - Venous thrombosis limb [Unknown]
  - Lacrimation increased [Unknown]
  - Nail discolouration [Unknown]
  - Musculoskeletal pain [Unknown]
  - Rash [Unknown]
  - Anaemia [Unknown]
  - Vision blurred [Unknown]
  - Hot flush [Unknown]

NARRATIVE: CASE EVENT DATE: 2016
